FAERS Safety Report 4967739-0 (Version None)
Quarter: 2006Q2

REPORT INFORMATION
  Report Type: 
  Country: None (occurrence: None)
  Receive Date: 20060404
  Receipt Date: 20060328
  Transmission Date: 20061013
  Serious: Yes (Life-Threatening)
  Sender: FDA-Public Use
  Company Number: 2006-140451-NL

PATIENT
  Age: 71 Year
  Sex: Male

DRUGS (2)
  1. MIRTAZAPINE [Suspect]
     Indication: DEPRESSION
     Dosage: 15 MG ORAL
     Route: 048
     Dates: start: 20050202, end: 20050220
  2. CEFUROXIME AXETIL [Concomitant]

REACTIONS (6)
  - AGRANULOCYTOSIS [None]
  - APPLICATION SITE REACTION [None]
  - CELLULITIS [None]
  - FEBRILE NEUTROPENIA [None]
  - HYPOTENSION [None]
  - PYREXIA [None]
